FAERS Safety Report 18264511 (Version 2)
Quarter: 2020Q4

REPORT INFORMATION
  Report Type: Spontaneous
  Country: US (occurrence: US)
  Receive Date: 20200914
  Receipt Date: 20201021
  Transmission Date: 20210113
  Serious: No
  Sender: FDA-Public Use
  Company Number: US-PFIZER INC-2020351713

PATIENT
  Age: 52 Year
  Sex: Female

DRUGS (2)
  1. XELJANZ XR [Suspect]
     Active Substance: TOFACITINIB CITRATE
     Indication: RHEUMATOID ARTHRITIS
     Dosage: 11 MG, DAILY
     Route: 048
     Dates: start: 202008
  2. CALCIUM + VIT D [Suspect]
     Active Substance: CALCIUM\VITAMIN D
     Dosage: UNK

REACTIONS (5)
  - Arthralgia [Unknown]
  - Therapeutic response unexpected [Recovered/Resolved]
  - Headache [Not Recovered/Not Resolved]
  - Gastric disorder [Recovered/Resolved]
  - Abdominal pain upper [Not Recovered/Not Resolved]
